FAERS Safety Report 21412063 (Version 1)
Quarter: 2022Q4

REPORT INFORMATION
  Report Type: Spontaneous
  Country: US (occurrence: US)
  Receive Date: 20221005
  Receipt Date: 20221005
  Transmission Date: 20230113
  Serious: No
  Sender: FDA-Public Use
  Company Number: US-APOTEX-2022AP009365

PATIENT
  Sex: Female

DRUGS (3)
  1. FLUTICASONE [Suspect]
     Active Substance: FLUTICASONE
     Indication: COVID-19
     Dosage: UNK
     Route: 065
     Dates: start: 20220531
  2. METHYLPREDNISOLONE [Suspect]
     Active Substance: METHYLPREDNISOLONE
     Indication: COVID-19
     Dosage: 4 MILLIGRAM
     Route: 065
     Dates: start: 20220531
  3. ALBUTEROL SULFATE [Suspect]
     Active Substance: ALBUTEROL SULFATE
     Indication: COVID-19
     Dosage: 2 DOSAGE FORM, Q.4H. (TWO PUFFS EVERY FOUR HOURS 90 MCG PER PUFF)
     Route: 065
     Dates: start: 20220531

REACTIONS (4)
  - Malaise [Unknown]
  - Oropharyngeal discomfort [Unknown]
  - Insomnia [Unknown]
  - Cough [Unknown]

NARRATIVE: CASE EVENT DATE: 20220601
